FAERS Safety Report 8318632-7 (Version None)
Quarter: 2012Q2

REPORT INFORMATION
  Report Type: 
  Country: None (occurrence: None)
  Receive Date: 20120427
  Receipt Date: 20090812
  Transmission Date: 20120825
  Serious: No
  Sender: FDA-Public Use
  Company Number: US-TEVA-2009009548

PATIENT
  Sex: Female
  Weight: 74.002 kg

DRUGS (11)
  1. ALPRAZOLAM [Concomitant]
     Dates: start: 20020101
  2. PREMPRO [Concomitant]
     Dates: start: 19950101
  3. AMBIEN [Concomitant]
     Dates: start: 20020101
  4. NUVIGIL [Suspect]
     Indication: FIBROMYALGIA
  5. EFFEXOR XR [Concomitant]
     Dates: start: 20020101
  6. METFORMIN HCL [Concomitant]
     Dates: start: 20070101
  7. NUVIGIL [Suspect]
     Indication: CHRONIC FATIGUE SYNDROME
     Dosage: 300 MILLIGRAM;
     Route: 048
     Dates: start: 20090801, end: 20090811
  8. SEROQUEL [Concomitant]
     Dates: start: 20020101
  9. HYDROCODONE BITARTRATE AND ACETAMINOPHEN [Concomitant]
     Dates: start: 20060101
  10. TRAZODONE HCL [Concomitant]
     Dates: start: 20020101
  11. HYDROXYZINE [Concomitant]

REACTIONS (9)
  - BACK PAIN [None]
  - SKIN BURNING SENSATION [None]
  - LETHARGY [None]
  - HEART RATE IRREGULAR [None]
  - INSOMNIA [None]
  - FATIGUE [None]
  - ANXIETY [None]
  - RASH PRURITIC [None]
  - URTICARIA [None]
